FAERS Safety Report 18924240 (Version 3)
Quarter: 2022Q1

REPORT INFORMATION
  Report Type: Spontaneous
  Country: US (occurrence: US)
  Receive Date: 20210222
  Receipt Date: 20220218
  Transmission Date: 20220424
  Serious: Yes (Other)
  Sender: FDA-Public Use
  Company Number: US-PFIZER INC-2021176205

PATIENT
  Age: 66 Year
  Sex: Female

DRUGS (2)
  1. XELJANZ XR [Suspect]
     Active Substance: TOFACITINIB CITRATE
     Dosage: 11 MG
  2. TOZINAMERAN [Concomitant]
     Active Substance: TOZINAMERAN

REACTIONS (4)
  - Diabetes mellitus [Not Recovered/Not Resolved]
  - Renal impairment [Unknown]
  - Drug ineffective [Unknown]
  - Psoriasis [Unknown]
